FAERS Safety Report 16099921 (Version 1)
Quarter: 2019Q1

REPORT INFORMATION
  Report Type: Spontaneous
  Country: FR (occurrence: FR)
  Receive Date: 20190321
  Receipt Date: 20190321
  Transmission Date: 20190418
  Serious: Yes (Other)
  Sender: FDA-Public Use
  Company Number: FR-ASTRAZENECA-2019SE42828

PATIENT
  Sex: Female

DRUGS (2)
  1. OLAPARIB. [Suspect]
     Active Substance: OLAPARIB
     Route: 048
     Dates: start: 2016
  2. OLAPARIB. [Suspect]
     Active Substance: OLAPARIB
     Dosage: STILL AT RECOMMENDED DOSAGE (800 MG DAILY).
     Route: 048

REACTIONS (1)
  - Superior vena cava syndrome [Recovered/Resolved]
